FAERS Safety Report 11260101 (Version 1)
Quarter: 2015Q3

REPORT INFORMATION
  Report Type: Spontaneous
  Country: FR (occurrence: FR)
  Receive Date: 20150710
  Receipt Date: 20150710
  Transmission Date: 20151125
  Serious: Yes (Life-Threatening)
  Sender: FDA-Public Use
  Company Number: FR-SA-2015SA098385

PATIENT
  Age: 40 Year
  Sex: Female

DRUGS (1)
  1. THYMOGLOBULINE [Suspect]
     Active Substance: LAPINE T-LYMPHOCYTE IMMUNE GLOBULIN
     Indication: RENAL TRANSPLANT
     Route: 058
     Dates: start: 20150428, end: 20150429

REACTIONS (4)
  - Acute respiratory distress syndrome [Recovered/Resolved with Sequelae]
  - Acute kidney injury [Recovering/Resolving]
  - Multi-organ failure [Recovering/Resolving]
  - Cardiovascular insufficiency [Recovering/Resolving]

NARRATIVE: CASE EVENT DATE: 20150428
